FAERS Safety Report 7531206-0 (Version None)
Quarter: 2011Q2

REPORT INFORMATION
  Report Type: 
  Country: None (occurrence: None)
  Receive Date: 20110527
  Receipt Date: 20110513
  Transmission Date: 20111010
  Serious: Yes (Life-Threatening, Hospitalization, Other)
  Sender: FDA-Public Use
  Company Number: WAES 1009FRA00073

PATIENT
  Age: 55 Year
  Sex: Female

DRUGS (22)
  1. AMLODIPINE [Concomitant]
  2. TAB ISENTRESS (RALTEGRAVIR POTASSIUM) [Suspect]
     Indication: HIV INFECTION
     Dosage: 800 BID PO,  400 BID PO
     Route: 048
     Dates: start: 20101112
  3. TAB ISENTRESS (RALTEGRAVIR POTASSIUM) [Suspect]
     Indication: HIV INFECTION
     Dosage: 800 BID PO,  400 BID PO
     Route: 048
     Dates: start: 20100803, end: 20100920
  4. MOXIFLOXACIN HYDROCHLORIDE [Concomitant]
  5. AMOXICILLIN AND CLAVULANATE POTASSIUM [Suspect]
     Indication: PYREXIA
     Dosage: 2 TAB/DAILY/PO
     Route: 048
     Dates: start: 20100907, end: 20100920
  6. MYCOPHENOLATE MEFETIL [Concomitant]
  7. TRAMADOL HCL [Concomitant]
  8. TENOFOVIR 245 MG/DAILY/PO HIV INFECTION [Suspect]
     Indication: HIV INFECTION
     Dosage: 245 MG/DAILY/PO
     Route: 048
     Dates: start: 20100803, end: 20100920
  9. PREDNISONE [Concomitant]
  10. VALACYCLOVIR HYDROCHLORIDE [Concomitant]
  11. CEFIXIME [Suspect]
     Indication: PYREXIA
     Dosage: 400 MG/DAILY/PO
     Route: 048
     Dates: start: 20100911, end: 20100915
  12. ATORVASTATIN CALCIUM [Concomitant]
  13. EMTRICITABINE (4+) TENOFOVIR DISOPROXIL F [Concomitant]
  14. ENOXAPARIN SODIUM [Concomitant]
  15. TACROLIMUS [Concomitant]
  16. RIFAMPIN [Suspect]
     Indication: TUBERCULOSIS
     Dosage: 600 MG/DAILY/PO PO
     Route: 048
     Dates: start: 20100628, end: 20100920
  17. ISONIAZID [Suspect]
     Indication: TUBERCULOSIS
     Dosage: 250 MG/DAILY/PO
     Route: 048
     Dates: start: 20100628, end: 20100920
  18. ETHAMBUTOL HYDROCHLORIDE [Concomitant]
  19. LAMIVUDINE [Suspect]
     Indication: HIV INFECTION
     Dosage: 300 MG/DAILY/PO
     Route: 048
     Dates: start: 20100803, end: 20100920
  20. ASPIRIN [Concomitant]
  21. CHONDROITIN SULFATE SODIUM [Concomitant]
  22. ESOMEPRAZOLE MAGNESIUM [Concomitant]

REACTIONS (17)
  - STAPHYLOCOCCAL INFECTION [None]
  - PYREXIA [None]
  - BLOOD SODIUM DECREASED [None]
  - RASH [None]
  - PERITONITIS [None]
  - HAEMOGLOBIN DECREASED [None]
  - HEPATITIS FULMINANT [None]
  - ENTEROCOCCAL INFECTION [None]
  - CYTOLYTIC HEPATITIS [None]
  - PULMONARY TUBERCULOSIS [None]
  - PERITONEAL HAEMORRHAGE [None]
  - HEPATIC ARTERY THROMBOSIS [None]
  - HEPATIC ENCEPHALOPATHY [None]
  - HEPATIC NECROSIS [None]
  - HAEMATOMA [None]
  - LIVER TRANSPLANT [None]
  - HEPATITIS ACUTE [None]
